FAERS Safety Report 5149025-1 (Version None)
Quarter: 2006Q4

REPORT INFORMATION
  Report Type: 
  Country: None (occurrence: None)
  Receive Date: 20061113
  Receipt Date: 20060907
  Transmission Date: 20070319
  Serious: Yes (Death, Other)
  Sender: FDA-Public Use
  Company Number: PHEH2006US11514

PATIENT
  Age: 77 Year
  Sex: Male

DRUGS (7)
  1. ESTRAMUSTINE [Concomitant]
     Dates: start: 20060818, end: 20061001
  2. CASODEX [Concomitant]
     Indication: PROSTATE CANCER
     Dosage: 100MG QD
     Dates: end: 20061001
  3. LUPRON [Concomitant]
     Dates: end: 20060601
  4. PROSCAR [Concomitant]
     Dates: end: 20060601
  5. ZOMETA [Suspect]
     Indication: METASTASES TO BONE
     Dosage: 4 MG MONTHLY
     Dates: start: 20040805, end: 20060825
  6. TAXOTERE [Concomitant]
     Indication: PROSTATE CANCER METASTATIC
     Dosage: 25MG/M2/WEEK
     Dates: start: 20050901, end: 20061001
  7. DECADRON [Concomitant]
     Indication: PROSTATE CANCER METASTATIC
     Dosage: UNK, QW
     Dates: start: 20051201

REACTIONS (4)
  - BONE DISORDER [None]
  - GINGIVAL DISORDER [None]
  - OSTEONECROSIS [None]
  - PROSTATE CANCER [None]
